FAERS Safety Report 10481292 (Version 12)
Quarter: 2017Q3

REPORT INFORMATION
  Report Type: Report from Study
  Country: US (occurrence: US)
  Receive Date: 20140929
  Receipt Date: 20170811
  Transmission Date: 20171127
  Serious: Yes (Life-Threatening, Hospitalization, Other)
  Sender: FDA-Public Use
  Company Number: US-ACTELION-A-US2014-105550

PATIENT
  Age: 17 Year
  Sex: Male

DRUGS (30)
  1. TRACLEER [Suspect]
     Active Substance: BOSENTAN
     Indication: PULMONARY ARTERIAL HYPERTENSION
     Dosage: 125 MG, BID
     Route: 048
     Dates: start: 201108
  2. LASIX [Concomitant]
     Active Substance: FUROSEMIDE
     Dosage: 20 MG, BID
  3. SINGULAIR [Concomitant]
     Active Substance: MONTELUKAST SODIUM
     Dosage: 10 MG, UNK
  4. CIALIS [Concomitant]
     Active Substance: TADALAFIL
     Dosage: 40 MG, QPM
  5. SALINE [Concomitant]
     Active Substance: SODIUM CHLORIDE
     Dosage: UNK, TID
  6. TRAZODONE [Concomitant]
     Active Substance: TRAZODONE HYDROCHLORIDE
     Dosage: 100 MG, QPM
  7. LISINOPRIL. [Concomitant]
     Active Substance: LISINOPRIL
  8. ALBUTEROL. [Concomitant]
     Active Substance: ALBUTEROL
     Dosage: 2.5 MG/M3, TID
  9. PULMICORT TURBUHALER [Concomitant]
     Active Substance: BUDESONIDE
     Dosage: 1 MG, BID
  10. FLONASE [Concomitant]
     Active Substance: FLUTICASONE PROPIONATE
     Dosage: UNK, QD
  11. PROTONIX [Concomitant]
     Active Substance: PANTOPRAZOLE SODIUM
     Dosage: 40 MG, QD
  12. ASA [Concomitant]
     Active Substance: ASPIRIN
     Dosage: 81 MG, QD
  13. ATOMOXETINE. [Concomitant]
     Active Substance: ATOMOXETINE HYDROCHLORIDE
     Dosage: 60 MG, UNK
  14. MAXITROL [Concomitant]
     Active Substance: DEXAMETHASONE\NEOMYCIN SULFATE\POLYMYXIN B SULFATE
     Dosage: UNK, BID
  15. POTASSIUM CHLORIDE. [Concomitant]
     Active Substance: POTASSIUM CHLORIDE
     Dosage: 20 MEQ, BID
  16. MUCOMYST [Concomitant]
     Active Substance: ACETYLCYSTEINE
     Dosage: 1 ML, BID
  17. UPTRAVI [Concomitant]
     Active Substance: SELEXIPAG
     Indication: PULMONARY ARTERIAL HYPERTENSION
     Route: 048
  18. OXYGEN. [Concomitant]
     Active Substance: OXYGEN
  19. FERROUS SULFATE. [Concomitant]
     Active Substance: FERROUS SULFATE
     Dosage: 325 MG, QD
  20. ZOSYN [Concomitant]
     Active Substance: PIPERACILLIN SODIUM\TAZOBACTAM SODIUM
     Dosage: UNK
     Dates: start: 20140831, end: 20140901
  21. TYLENOL [Concomitant]
     Active Substance: ACETAMINOPHEN
     Dosage: 650 MG, Q4HRS
  22. COREG [Concomitant]
     Active Substance: CARVEDILOL
  23. SILDENAFIL. [Concomitant]
     Active Substance: SILDENAFIL
  24. CLONIDINE. [Concomitant]
     Active Substance: CLONIDINE
     Dosage: 0.1 MG, BID
  25. MULTIVITAMIN [Concomitant]
     Active Substance: VITAMINS
     Dosage: UNK, QD
  26. SIMETHICONE (DIMETHICONE) [Concomitant]
     Active Substance: DIMETHICONE
     Dosage: 80 MG, Q6HRS
  27. TRACLEER [Suspect]
     Active Substance: BOSENTAN
     Dosage: 31.25 MG, BID
     Route: 048
     Dates: start: 201109, end: 20120424
  28. ADCIRCA [Concomitant]
     Active Substance: TADALAFIL
  29. SENNA [Concomitant]
     Active Substance: SENNA LEAF\SENNOSIDES\SENNOSIDES A AND B
     Dosage: 2 UNK, PRN
  30. IBUPROFEN. [Concomitant]
     Active Substance: IBUPROFEN
     Dosage: 600 MG, Q6HRS

REACTIONS (34)
  - Deafness [Recovered/Resolved]
  - Abdominal pain [Recovered/Resolved]
  - Pyrexia [Unknown]
  - Hypotension [Unknown]
  - Duodenal ulcer perforation [Recovered/Resolved]
  - Ascites [Recovered/Resolved]
  - Cough [Recovering/Resolving]
  - Renal failure [Unknown]
  - Blood potassium increased [Unknown]
  - Post procedural haemorrhage [Unknown]
  - Transfusion [Unknown]
  - Dialysis [Unknown]
  - Dizziness [Unknown]
  - Headache [Unknown]
  - Pulmonary embolism [Recovering/Resolving]
  - Haemoptysis [Unknown]
  - Diarrhoea [Unknown]
  - Chest pain [Recovering/Resolving]
  - Acute respiratory distress syndrome [Unknown]
  - Otitis media [Recovered/Resolved]
  - Rash [Unknown]
  - Pulmonary haemorrhage [Unknown]
  - Sepsis [Recovering/Resolving]
  - Haemoptysis [Recovering/Resolving]
  - Urine output decreased [Unknown]
  - Respiratory failure [Not Recovered/Not Resolved]
  - Pulmonary oedema [Unknown]
  - Blood creatinine increased [Unknown]
  - Drug hypersensitivity [Unknown]
  - Staphylococcal infection [Unknown]
  - Hyperglycaemia [Recovered/Resolved]
  - Haemoglobin decreased [Unknown]
  - Pulmonary arterial hypertension [Unknown]
  - Dyspnoea [Unknown]

NARRATIVE: CASE EVENT DATE: 20140827
